FAERS Safety Report 21602886 (Version 1)
Quarter: 2022Q4

REPORT INFORMATION
  Report Type: Spontaneous
  Country: CN (occurrence: CN)
  Receive Date: 20221116
  Receipt Date: 20221116
  Transmission Date: 20230113
  Serious: Yes (Other)
  Sender: FDA-Public Use
  Company Number: None

PATIENT
  Age: 65 Year
  Sex: Male

DRUGS (3)
  1. IFOSFAMIDE [Suspect]
     Active Substance: IFOSFAMIDE
     Indication: Chemotherapy
     Dosage: 2 G, QD
     Route: 041
     Dates: start: 20220829, end: 20220829
  2. MESNA [Suspect]
     Active Substance: MESNA
     Indication: Chemotherapy
     Dosage: 0.4 G, TID
     Route: 065
     Dates: start: 20220829
  3. ETOPOSIDE [Suspect]
     Active Substance: ETOPOSIDE
     Indication: Chemotherapy
     Dosage: 0.12 G, QD
     Route: 041
     Dates: start: 20220829, end: 20220829

REACTIONS (1)
  - Myelosuppression [Recovering/Resolving]

NARRATIVE: CASE EVENT DATE: 20220829
